FAERS Safety Report 19162822 (Version 1)
Quarter: 2021Q2

REPORT INFORMATION
  Report Type: Spontaneous
  Country: US (occurrence: US)
  Receive Date: 20210420
  Receipt Date: 20210420
  Transmission Date: 20210717
  Serious: Yes (Other)
  Sender: FDA-Public Use
  Company Number: None

PATIENT
  Age: 57 Year
  Sex: Female
  Weight: 83.9 kg

DRUGS (2)
  1. REPATHA [Suspect]
     Active Substance: EVOLOCUMAB
     Indication: HYPERLIPIDAEMIA
     Dates: start: 20210303, end: 20210317
  2. REPATHA [Concomitant]
     Active Substance: EVOLOCUMAB
     Dates: start: 20210303, end: 20210317

REACTIONS (4)
  - Tinnitus [None]
  - Diarrhoea [None]
  - Hypoacusis [None]
  - Insomnia [None]

NARRATIVE: CASE EVENT DATE: 20210317
